FAERS Safety Report 9203907 (Version 1)
Quarter: 2013Q1

REPORT INFORMATION
  Report Type: Spontaneous
  Country: US (occurrence: None)
  Receive Date: 20130329
  Receipt Date: 20130329
  Transmission Date: 20140127
  Serious: Yes (Hospitalization)
  Sender: FDA-Public Use
  Company Number: None

PATIENT
  Age: 59 Year
  Sex: Male
  Weight: 74.7 kg

DRUGS (1)
  1. DICLOFENAC [Suspect]
     Indication: PAIN
     Dosage: MG
     Route: 048
     Dates: end: 20130322

REACTIONS (2)
  - Duodenal ulcer haemorrhage [None]
  - Gastric haemorrhage [None]
